FAERS Safety Report 22208546 (Version 1)
Quarter: 2023Q2

REPORT INFORMATION
  Report Type: Other
  Country: US (occurrence: US)
  Receive Date: 20230413
  Receipt Date: 20230413
  Transmission Date: 20230721
  Serious: No
  Sender: FDA-Public Use
  Company Number: US-TRAVERE-2022TVT00593

PATIENT
  Age: 23 Year
  Sex: Female

DRUGS (8)
  1. CHOLIC ACID [Suspect]
     Active Substance: CHOLIC ACID
     Indication: Lipid metabolism disorder
     Route: 048
     Dates: start: 20220106
  2. BISOPROLOL FUMARATE [Concomitant]
  3. ChenoDAL Tablet  250 MG [Concomitant]
  4. DEPO-PROVERA [Concomitant]
     Active Substance: MEDROXYPROGESTERONE ACETATE
  5. ESCITALOPRAM [Concomitant]
     Active Substance: ESCITALOPRAM OXALATE
  6. FLUDROCORTISONE ACETATE [Concomitant]
  7. Prenatal One Daily [Concomitant]
  8. WELLBUTRIN XL [Concomitant]
     Active Substance: BUPROPION HYDROCHLORIDE

REACTIONS (1)
  - Diarrhoea [Unknown]
